FAERS Safety Report 16363125 (Version 1)
Quarter: 2019Q2

REPORT INFORMATION
  Report Type: Report from Study
  Country: IE (occurrence: IE)
  Receive Date: 20190528
  Receipt Date: 20190528
  Transmission Date: 20190711
  Serious: Yes (Other)
  Sender: FDA-Public Use
  Company Number: IE-JNJFOC-20190531423

PATIENT
  Age: 63 Year
  Sex: Male

DRUGS (10)
  1. STELARA [Suspect]
     Active Substance: USTEKINUMAB
     Indication: PSORIASIS
     Route: 058
     Dates: start: 20171123
  2. XARELTO [Concomitant]
     Active Substance: RIVAROXABAN
     Route: 050
  3. TAMSU [Concomitant]
     Active Substance: TAMSULOSIN HYDROCHLORIDE
     Route: 050
  4. RISPERIDONE. [Concomitant]
     Active Substance: RISPERIDONE
     Route: 050
  5. LITHIUM CARBONATE. [Concomitant]
     Active Substance: LITHIUM CARBONATE
     Route: 050
  6. PRAVASTATIN. [Concomitant]
     Active Substance: PRAVASTATIN
     Route: 050
  7. CLONFOLIC [Concomitant]
     Route: 050
  8. OLANZAPINE. [Concomitant]
     Active Substance: OLANZAPINE
     Route: 050
  9. GALFER [Concomitant]
     Active Substance: IRON
     Route: 050
  10. ZOLPIDEM [Concomitant]
     Active Substance: ZOLPIDEM\ZOLPIDEM TARTRATE
     Route: 050

REACTIONS (1)
  - Lower respiratory tract infection [Recovered/Resolved]

NARRATIVE: CASE EVENT DATE: 201904
